FAERS Safety Report 5775984-X (Version None)
Quarter: 2008Q2

REPORT INFORMATION
  Report Type: 
  Country: None (occurrence: None)
  Receive Date: 20080601
  Receipt Date: 20080116
  Transmission Date: 20081010
  Serious: No
  Sender: FDA-Public Use
  Company Number: US200801003482

PATIENT
  Age: 53 Year
  Sex: Male

DRUGS (14)
  1. BYETTA [Suspect]
     Indication: TYPE 2 DIABETES MELLITUS
     Dosage: 5 UG, 2/D, SUBCUTANEOUS; 10 UG, 2/D, SUBCUTANEOUS
     Route: 058
     Dates: start: 20071208, end: 20080101
  2. BYETTA [Suspect]
     Indication: TYPE 2 DIABETES MELLITUS
     Dosage: 5 UG, 2/D, SUBCUTANEOUS; 10 UG, 2/D, SUBCUTANEOUS
     Route: 058
     Dates: start: 20080101
  3. FLOMAX [Concomitant]
  4. LISINOPRIL [Concomitant]
  5. HYDROCHLOROTHIAZIDE [Concomitant]
  6. RANITIDINE [Concomitant]
  7. AVODART [Concomitant]
  8. ASPIRIN [Concomitant]
  9. METFORMIN HCL [Concomitant]
  10. DETROL [Concomitant]
  11. DEPAKOTE [Concomitant]
  12. CRESTOR [Concomitant]
  13. SAW PALMETTO (SERENOA REPENS) [Concomitant]
  14. FISH OIL (FISH OIL) [Concomitant]

REACTIONS (5)
  - DECREASED APPETITE [None]
  - FLATULENCE [None]
  - FREQUENT BOWEL MOVEMENTS [None]
  - INJECTION SITE BRUISING [None]
  - NAUSEA [None]
